FAERS Safety Report 5364560-9 (Version None)
Quarter: 2007Q2

REPORT INFORMATION
  Report Type: 
  Country: None (occurrence: None)
  Receive Date: 20070530
  Receipt Date: 20070118
  Transmission Date: 20071010
  Serious: No
  Sender: FDA-Public Use
  Company Number: 2007PV028658

PATIENT
  Age: 67 Year
  Sex: Female
  Weight: 94.3482 kg

DRUGS (7)
  1. BYETTA [Suspect]
     Indication: DIABETES MELLITUS NON-INSULIN-DEPENDENT
     Dosage: 10 MCG;BID;SC; 5 MCG;BID;SC
     Route: 058
     Dates: start: 20070116, end: 20070217
  2. BYETTA [Suspect]
     Indication: DIABETES MELLITUS NON-INSULIN-DEPENDENT
     Dosage: 10 MCG;BID;SC; 5 MCG;BID;SC
     Route: 058
     Dates: start: 20070217
  3. STEROID INJECTION [Suspect]
     Indication: BACK PAIN
     Dates: start: 20070122
  4. AVANDIA [Concomitant]
  5. AMARYL [Concomitant]
  6. GLUCOPHAGE - SLOW RELEASE [Concomitant]
  7. BYETTA [Suspect]

REACTIONS (9)
  - BLOOD GLUCOSE INCREASED [None]
  - FATIGUE [None]
  - INJECTION SITE BRUISING [None]
  - INJECTION SITE ERYTHEMA [None]
  - INJECTION SITE HAEMORRHAGE [None]
  - PARAESTHESIA ORAL [None]
  - RASH [None]
  - THIRST [None]
  - WEIGHT DECREASED [None]
